FAERS Safety Report 14556854 (Version 1)
Quarter: 2018Q1

REPORT INFORMATION
  Report Type: Spontaneous
  Country: RU (occurrence: RU)
  Receive Date: 20180221
  Receipt Date: 20180221
  Transmission Date: 20180509
  Serious: Yes (Other)
  Sender: FDA-Public Use
  Company Number: RU-ASTRAZENECA-2018SE21150

PATIENT
  Age: 71 Year
  Sex: Female
  Weight: 62 kg

DRUGS (6)
  1. BRILINTA [Suspect]
     Active Substance: TICAGRELOR
     Indication: MYOCARDIAL INFARCTION
     Route: 048
     Dates: start: 201711
  2. ASPIRIN CARDIO [Concomitant]
     Active Substance: ASPIRIN
  3. PERINEVA [Concomitant]
     Active Substance: PERINDOPRIL ERBUMINE
  4. EGILOK [Concomitant]
     Active Substance: METOPROLOL TARTRATE
  5. ATORVASTATIN [Concomitant]
     Active Substance: ATORVASTATIN
  6. NOLPAZA [Concomitant]
     Active Substance: PANTOPRAZOLE SODIUM

REACTIONS (2)
  - Angina unstable [Recovered/Resolved]
  - Headache [Not Recovered/Not Resolved]

NARRATIVE: CASE EVENT DATE: 2018
